FAERS Safety Report 24984640 (Version 3)
Quarter: 2025Q1

REPORT INFORMATION
  Report Type: Report from Study
  Country: IN (occurrence: IN)
  Receive Date: 20250219
  Receipt Date: 20250320
  Transmission Date: 20250408
  Serious: Yes (Death)
  Sender: ROCHE
  Company Number: IN-ROCHE-10000157426

PATIENT
  Age: 59 Year
  Sex: Female

DRUGS (2)
  1. TECENTRIQ [Suspect]
     Active Substance: ATEZOLIZUMAB
     Indication: Lung adenocarcinoma
     Route: 042
     Dates: start: 20241005
  2. TECENTRIQ [Suspect]
     Active Substance: ATEZOLIZUMAB
     Route: 042

REACTIONS (3)
  - Full blood count abnormal [Unknown]
  - Pneumonia [Fatal]
  - Infection [Fatal]

NARRATIVE: CASE EVENT DATE: 20250211
